FAERS Safety Report 7518541-7 (Version None)
Quarter: 2011Q2

REPORT INFORMATION
  Report Type: 
  Country: None (occurrence: None)
  Receive Date: 20110602
  Receipt Date: 20110519
  Transmission Date: 20111010
  Serious: Yes (Other)
  Sender: FDA-Public Use
  Company Number: US-MYLANLABS-2011S1010682

PATIENT
  Age: 16 Year
  Sex: Male

DRUGS (6)
  1. DEXAMETHASONE [Suspect]
     Indication: NAUSEA
     Dosage: 6 MG/DAY ON DAYS 1-7
     Route: 065
  2. ETOPOSIDE [Suspect]
     Indication: TESTICULAR GERM CELL CANCER
     Dosage: 100 MG/M2 ON DAYS 1-5
     Route: 065
  3. ONDANSETRON [Concomitant]
     Indication: NAUSEA
     Route: 065
  4. BLEOMYCIN SULFATE [Suspect]
     Indication: TESTICULAR GERM CELL CANCER
     Dosage: 30MG ON DAYS 1, 5 AND 15
     Route: 065
  5. CISPLATIN [Suspect]
     Indication: TESTICULAR GERM CELL CANCER
     Dosage: 20 MG/M2 ON DAYS 1-5
     Route: 065
  6. PROMETHAZINE [Concomitant]
     Indication: NAUSEA
     Dosage: 25MG EVERY 8H AS REQUIRED ON DAYS 1-5
     Route: 065

REACTIONS (2)
  - NEUTROPENIA [None]
  - PSYCHOTIC DISORDER [None]
